FAERS Safety Report 6144997-0 (Version None)
Quarter: 2009Q2

REPORT INFORMATION
  Report Type: 
  Country: None (occurrence: None)
  Receive Date: 20090406
  Receipt Date: 20090323
  Transmission Date: 20091009
  Serious: Yes (Other)
  Sender: FDA-Public Use
  Company Number: US-ELI_LILLY_AND_COMPANY-US200903005870

PATIENT
  Age: 10 Year
  Sex: Male

DRUGS (3)
  1. PROZAC [Suspect]
     Indication: ANXIETY DISORDER
     Dosage: 65 MG, DAILY (1/D)
     Route: 065
  2. PROZAC [Suspect]
     Dosage: 40 MG, DAILY (1/D)
     Route: 065
  3. ZOMIG [Concomitant]
     Dosage: UNK, UNKNOWN
     Route: 065

REACTIONS (1)
  - LIVER FUNCTION TEST ABNORMAL [None]
